FAERS Safety Report 25099168 (Version 1)
Quarter: 2025Q1

REPORT INFORMATION
  Report Type: Report from Study
  Country: US (occurrence: US)
  Receive Date: 20250320
  Receipt Date: 20250320
  Transmission Date: 20250409
  Serious: Yes (Other)
  Sender: MYLAN
  Company Number: US-MYLANLABS-2025M1023059

PATIENT
  Age: 210 Month
  Sex: Male

DRUGS (16)
  1. ETOPOSIDE [Suspect]
     Active Substance: ETOPOSIDE
     Indication: Medulloblastoma recurrent
     Dosage: 50 MILLIGRAM/SQ. METER, 28D CYCLE (50 MG/M2/DOSE ON DAY 1-7 IN 28 DAYS CYCLE)
  2. ETOPOSIDE [Suspect]
     Active Substance: ETOPOSIDE
     Dosage: 50 MILLIGRAM/SQ. METER, 28D CYCLE (50 MG/M2/DOSE ON DAY 1-7 IN 28 DAYS CYCLE)
     Route: 048
  3. ETOPOSIDE [Suspect]
     Active Substance: ETOPOSIDE
     Dosage: 50 MILLIGRAM/SQ. METER, 28D CYCLE (50 MG/M2/DOSE ON DAY 1-7 IN 28 DAYS CYCLE)
     Route: 048
  4. ETOPOSIDE [Suspect]
     Active Substance: ETOPOSIDE
     Dosage: 50 MILLIGRAM/SQ. METER, 28D CYCLE (50 MG/M2/DOSE ON DAY 1-7 IN 28 DAYS CYCLE)
  5. IRINOTECAN [Suspect]
     Active Substance: IRINOTECAN
     Indication: Medulloblastoma recurrent
     Dosage: 125 MILLIGRAM/SQ. METER, 28D CYCLE (125 MG/M2/DOSE ON DAY 1 AND 8 IN 28 DAYS CYCLE)
  6. IRINOTECAN [Suspect]
     Active Substance: IRINOTECAN
     Dosage: 125 MILLIGRAM/SQ. METER, 28D CYCLE (125 MG/M2/DOSE ON DAY 1 AND 8 IN 28 DAYS CYCLE)
     Route: 042
  7. IRINOTECAN [Suspect]
     Active Substance: IRINOTECAN
     Dosage: 125 MILLIGRAM/SQ. METER, 28D CYCLE (125 MG/M2/DOSE ON DAY 1 AND 8 IN 28 DAYS CYCLE)
     Route: 042
  8. IRINOTECAN [Suspect]
     Active Substance: IRINOTECAN
     Dosage: 125 MILLIGRAM/SQ. METER, 28D CYCLE (125 MG/M2/DOSE ON DAY 1 AND 8 IN 28 DAYS CYCLE)
  9. CYCLOPHOSPHAMIDE [Suspect]
     Active Substance: CYCLOPHOSPHAMIDE
     Indication: Medulloblastoma recurrent
     Dosage: 1500 MILLIGRAM/SQ. METER, 28D CYCLE {~1500 MG/M2/DOSE ON DAY 1 AND 2 IN 28 DAYS CYCLE}
  10. CYCLOPHOSPHAMIDE [Suspect]
     Active Substance: CYCLOPHOSPHAMIDE
     Dosage: 1500 MILLIGRAM/SQ. METER, 28D CYCLE {~1500 MG/M2/DOSE ON DAY 1 AND 2 IN 28 DAYS CYCLE}
     Route: 042
  11. CYCLOPHOSPHAMIDE [Suspect]
     Active Substance: CYCLOPHOSPHAMIDE
     Dosage: 1500 MILLIGRAM/SQ. METER, 28D CYCLE {~1500 MG/M2/DOSE ON DAY 1 AND 2 IN 28 DAYS CYCLE}
     Route: 042
  12. CYCLOPHOSPHAMIDE [Suspect]
     Active Substance: CYCLOPHOSPHAMIDE
     Dosage: 1500 MILLIGRAM/SQ. METER, 28D CYCLE {~1500 MG/M2/DOSE ON DAY 1 AND 2 IN 28 DAYS CYCLE}
  13. TEMOZOLOMIDE [Suspect]
     Active Substance: TEMOZOLOMIDE
     Indication: Medulloblastoma recurrent
     Dosage: 150 MILLIGRAM/SQ. METER, 28D CYCLE {150 MILLIGRAM/SQ. METER,150 MG/M2/DOSE ON DAY 1-5 IN 28 DAYS CYCLE}
  14. TEMOZOLOMIDE [Suspect]
     Active Substance: TEMOZOLOMIDE
     Dosage: 150 MILLIGRAM/SQ. METER, 28D CYCLE {150 MILLIGRAM/SQ. METER,150 MG/M2/DOSE ON DAY 1-5 IN 28 DAYS CYCLE}
     Route: 048
  15. TEMOZOLOMIDE [Suspect]
     Active Substance: TEMOZOLOMIDE
     Dosage: 150 MILLIGRAM/SQ. METER, 28D CYCLE {150 MILLIGRAM/SQ. METER,150 MG/M2/DOSE ON DAY 1-5 IN 28 DAYS CYCLE}
     Route: 048
  16. TEMOZOLOMIDE [Suspect]
     Active Substance: TEMOZOLOMIDE
     Dosage: 150 MILLIGRAM/SQ. METER, 28D CYCLE {150 MILLIGRAM/SQ. METER,150 MG/M2/DOSE ON DAY 1-5 IN 28 DAYS CYCLE}

REACTIONS (4)
  - Myelosuppression [Unknown]
  - Febrile neutropenia [Unknown]
  - Infection [Unknown]
  - Off label use [Unknown]
